FAERS Safety Report 11179388 (Version 2)
Quarter: 2015Q2

REPORT INFORMATION
  Report Type: Spontaneous
  Country: US (occurrence: US)
  Receive Date: 20150611
  Receipt Date: 20150626
  Transmission Date: 20150821
  Serious: Yes (Death)
  Sender: FDA-Public Use
  Company Number: US-ROCHE-1591485

PATIENT
  Age: 58 Year
  Sex: Female

DRUGS (1)
  1. ZELBORAF [Suspect]
     Active Substance: VEMURAFENIB
     Indication: MALIGNANT MELANOMA
     Dosage: 3 TABLETS TWICE DAILY
     Route: 048
     Dates: start: 20140723, end: 20150321

REACTIONS (1)
  - Metastatic malignant melanoma [Fatal]

NARRATIVE: CASE EVENT DATE: 20150321
